FAERS Safety Report 26139478 (Version 1)
Quarter: 2025Q4

REPORT INFORMATION
  Report Type: Spontaneous
  Country: JP (occurrence: JP)
  Receive Date: 20251210
  Receipt Date: 20251210
  Transmission Date: 20260118
  Serious: Yes (Other)
  Sender: MERCK SHARP & DOHME LLC
  Company Number: JP-009507513-2357523

PATIENT
  Age: 75 Year
  Sex: Male

DRUGS (4)
  1. KEYTRUDA [Suspect]
     Active Substance: PEMBROLIZUMAB
     Indication: Renal cell carcinoma
  2. INLYTA [Suspect]
     Active Substance: AXITINIB
     Indication: Renal cell carcinoma
  3. CABOMETYX [Suspect]
     Active Substance: CABOZANTINIB S-MALATE
     Indication: Renal cell carcinoma
  4. CABOMETYX [Suspect]
     Active Substance: CABOZANTINIB S-MALATE
     Indication: Renal cell carcinoma
     Dosage: EVERY OTHER DAY

REACTIONS (4)
  - Renal impairment [Unknown]
  - Immune-mediated enterocolitis [Unknown]
  - Hypertension [Unknown]
  - Decreased appetite [Unknown]
